FAERS Safety Report 16214796 (Version 1)
Quarter: 2019Q2

REPORT INFORMATION
  Report Type: Spontaneous
  Country: US (occurrence: US)
  Receive Date: 20190418
  Receipt Date: 20190418
  Transmission Date: 20190711
  Serious: No
  Sender: FDA-Public Use
  Company Number: None

PATIENT
  Age: 60 Year
  Sex: Male
  Weight: 72 kg

DRUGS (1)
  1. CIRIAX 500 CIPROFLOXACINA [Suspect]
     Active Substance: CIPROFLOXACIN
     Indication: GASTROINTESTINAL PAIN
     Dosage: ?          QUANTITY:10 TABLET(S);?
     Route: 048
     Dates: start: 20170824, end: 20170902

REACTIONS (5)
  - Suicidal ideation [None]
  - Insomnia [None]
  - Anxiety [None]
  - Blindness unilateral [None]
  - Tinnitus [None]

NARRATIVE: CASE EVENT DATE: 20170910
